FAERS Safety Report 4383532-4 (Version None)
Quarter: 2004Q2

REPORT INFORMATION
  Report Type: 
  Country: None (occurrence: None)
  Receive Date: 20040623
  Receipt Date: 20040615
  Transmission Date: 20050107
  Serious: Yes (Life-Threatening)
  Sender: FDA-Public Use
  Company Number: JP-MERCK-0406USA01719

PATIENT
  Age: 83 Year
  Sex: Female

DRUGS (8)
  1. [THERAPY UNSPECIFIED] [Concomitant]
     Route: 065
     Dates: start: 20040401
  2. AMANTADINE HYDROCHLORIDE [Concomitant]
     Route: 065
     Dates: start: 20040401
  3. PRIMAXIN [Suspect]
     Indication: PLEURISY
     Route: 042
     Dates: start: 20040525, end: 20040526
  4. PRIMAXIN [Suspect]
     Indication: PNEUMONIA
     Route: 042
     Dates: start: 20040525, end: 20040526
  5. DIGOXIN [Concomitant]
     Route: 065
     Dates: start: 20040401
  6. NIFEDIPINE [Concomitant]
     Route: 065
     Dates: start: 20040401
  7. PHENOBARBITAL [Concomitant]
     Route: 065
     Dates: start: 20040401
  8. TELMISARTAN [Concomitant]
     Route: 065
     Dates: start: 20040401

REACTIONS (1)
  - DEPRESSED LEVEL OF CONSCIOUSNESS [None]
